FAERS Safety Report 11226976 (Version 2)
Quarter: 2015Q3

REPORT INFORMATION
  Report Type: Spontaneous
  Country: US (occurrence: US)
  Receive Date: 20150630
  Receipt Date: 20150706
  Transmission Date: 20151125
  Serious: Yes (Hospitalization, Other)
  Sender: FDA-Public Use
  Company Number: US-AMGEN-USASP2015061256

PATIENT
  Age: 81 Year
  Sex: Female

DRUGS (1)
  1. PROLIA [Suspect]
     Active Substance: DENOSUMAB
     Indication: PRODUCT USED FOR UNKNOWN INDICATION
     Dosage: UNK
     Route: 065
     Dates: start: 2012

REACTIONS (13)
  - Hip arthroplasty [Unknown]
  - Abnormal dreams [Unknown]
  - Sebaceous gland disorder [Unknown]
  - Pruritus [Unknown]
  - Hypoaesthesia [Unknown]
  - Parathyroid disorder [Unknown]
  - Limb discomfort [Unknown]
  - Oropharyngeal pain [Unknown]
  - Headache [Unknown]
  - Ear pain [Unknown]
  - Road traffic accident [Unknown]
  - Rash [Not Recovered/Not Resolved]
  - Arthritis [Unknown]

NARRATIVE: CASE EVENT DATE: 20120203
